FAERS Safety Report 4972856-5 (Version None)
Quarter: 2006Q2

REPORT INFORMATION
  Report Type: 
  Country: None (occurrence: None)
  Receive Date: 20060410
  Receipt Date: 20060321
  Transmission Date: 20061013
  Serious: Yes (Hospitalization)
  Sender: FDA-Public Use
  Company Number: US200603002781

PATIENT

DRUGS (1)
  1. TERIPARATIDE(TERIPARATIDE) PEN, DISPOSABLE [Suspect]

REACTIONS (4)
  - DEHYDRATION [None]
  - DEMENTIA [None]
  - HYPOTHYROIDISM [None]
  - URINARY TRACT INFECTION [None]
